FAERS Safety Report 4730990-9 (Version None)
Quarter: 2005Q3

REPORT INFORMATION
  Report Type: 
  Country: None (occurrence: None)
  Receive Date: 20050719
  Receipt Date: 20040722
  Transmission Date: 20060218
  Serious: Yes (Hospitalization)
  Sender: FDA-Public Use
  Company Number: 201838

PATIENT
  Age: 39 Year
  Sex: Female
  Weight: 54.4316 kg

DRUGS (2)
  1. AVONEX [Suspect]
     Indication: MULTIPLE SCLEROSIS
     Dosage: 15 UG;QW;IM
     Route: 030
     Dates: start: 20040611, end: 20040611
  2. AVONEX [Suspect]
     Indication: MULTIPLE SCLEROSIS
     Dosage: 15 UG;QW;IM
     Route: 030
     Dates: start: 20040618, end: 20040804

REACTIONS (5)
  - CHEST DISCOMFORT [None]
  - FATIGUE [None]
  - PAIN IN EXTREMITY [None]
  - SINUS HEADACHE [None]
  - UPPER RESPIRATORY TRACT INFECTION [None]
